FAERS Safety Report 9161426 (Version 2)
Quarter: 2013Q2

REPORT INFORMATION
  Report Type: Spontaneous
  Country: US (occurrence: US)
  Receive Date: 20130313
  Receipt Date: 20130603
  Transmission Date: 20140414
  Serious: No
  Sender: FDA-Public Use
  Company Number: US-009507513-1303USA002624

PATIENT
  Age: 12 Year
  Sex: Female
  Weight: 63.95 kg

DRUGS (2)
  1. IMPLANON [Suspect]
     Indication: CONTRACEPTION
     Dosage: 1 DF, LEFT ARM
     Route: 059
     Dates: start: 20120808
  2. PROPRANOLOL HYDROCHLORIDE [Concomitant]
     Indication: MIGRAINE
     Dosage: UNK
     Dates: end: 201208

REACTIONS (6)
  - Implant site pain [Recovered/Resolved]
  - Menorrhagia [Recovered/Resolved]
  - Amenorrhoea [Not Recovered/Not Resolved]
  - Abdominal pain [Not Recovered/Not Resolved]
  - Abdominal distension [Not Recovered/Not Resolved]
  - Implant site pain [Not Recovered/Not Resolved]
